FAERS Safety Report 5917000-2 (Version None)
Quarter: 2008Q4

REPORT INFORMATION
  Report Type: 
  Country: None (occurrence: None)
  Receive Date: 20081014
  Receipt Date: 20081007
  Transmission Date: 20090506
  Serious: Yes (Other)
  Sender: FDA-Public Use
  Company Number: US-RANBAXY-2008US-18553

PATIENT

DRUGS (2)
  1. AMOXICILLIN + CLAVULANATE POTASSIUM [Suspect]
     Indication: INFECTION
     Dosage: 875 MG, BID
     Route: 048
     Dates: start: 20081002, end: 20081005
  2. HYDROCODEINE [Concomitant]
     Indication: DRUG USE FOR UNKNOWN INDICATION
     Dosage: 20 MG, TID

REACTIONS (3)
  - CHEST PAIN [None]
  - DIARRHOEA [None]
  - HAEMATOCHEZIA [None]
